FAERS Safety Report 16547140 (Version 1)
Quarter: 2019Q3

REPORT INFORMATION
  Report Type: Spontaneous
  Country: IT (occurrence: IT)
  Receive Date: 20190709
  Receipt Date: 20190709
  Transmission Date: 20191004
  Serious: Yes (Other)
  Sender: FDA-Public Use
  Company Number: IT-BAUSCH-BL-2019-019089

PATIENT
  Sex: Male

DRUGS (10)
  1. CYTARABINE. [Suspect]
     Active Substance: CYTARABINE
     Indication: DIFFUSE LARGE B-CELL LYMPHOMA
     Dosage: ONE UNSPECIFIED DOSE (CYCLICAL)
     Route: 065
     Dates: start: 20180921, end: 20181025
  2. MABTHERA [Suspect]
     Active Substance: RITUXIMAB
     Indication: DIFFUSE LARGE B-CELL LYMPHOMA
     Dosage: ONE UNSPECIFIED DOSE (CYCLICAL)
     Route: 058
     Dates: start: 20180312, end: 20180702
  3. MABTHERA [Suspect]
     Active Substance: RITUXIMAB
     Dosage: ONE UNSPECIFIED DOSE (CYCLICAL)
     Route: 042
     Dates: start: 20180312, end: 20180702
  4. MABTHERA [Suspect]
     Active Substance: RITUXIMAB
     Indication: DIFFUSE LARGE B-CELL LYMPHOMA
     Dosage: ONE UNSPECIFIED DOSE (CYCLICAL)
     Route: 042
     Dates: start: 20180921, end: 20181025
  5. PREDNISONE. [Suspect]
     Active Substance: PREDNISONE
     Indication: DIFFUSE LARGE B-CELL LYMPHOMA
     Dosage: ONE UNSPECIFIED DOSE (CYCLICAL)
     Route: 065
     Dates: start: 20180312, end: 20180702
  6. DOXORUBICIN [Suspect]
     Active Substance: DOXORUBICIN
     Indication: DIFFUSE LARGE B-CELL LYMPHOMA
     Dosage: ONE UNSPECIFIED DOSE (CYCLICAL)
     Route: 065
     Dates: start: 20180312, end: 20180702
  7. DEXAMETHASONE. [Suspect]
     Active Substance: DEXAMETHASONE
     Indication: DIFFUSE LARGE B-CELL LYMPHOMA
     Dosage: ONE UNSPECIFIED DOSE (CYCLICAL)
     Route: 065
     Dates: start: 20180921, end: 20181025
  8. CISPLATIN. [Suspect]
     Active Substance: CISPLATIN
     Indication: DIFFUSE LARGE B-CELL LYMPHOMA
     Dosage: ONE UNSPECIFIED DOSE (CYCLICAL)
     Route: 065
     Dates: start: 20180921, end: 20181025
  9. VINCRISTINE [Suspect]
     Active Substance: VINCRISTINE
     Indication: DIFFUSE LARGE B-CELL LYMPHOMA
     Dosage: ONE UNSPECIFIED DOSE (CYCLICAL)
     Route: 065
     Dates: start: 20180312, end: 20180702
  10. CYCLOPHOSPHAMIDE. [Suspect]
     Active Substance: CYCLOPHOSPHAMIDE
     Indication: DIFFUSE LARGE B-CELL LYMPHOMA
     Dosage: ONE UNSPECIFIED DOSE (CYCLICAL)
     Route: 065
     Dates: start: 20180312, end: 20180702

REACTIONS (2)
  - Drug ineffective [Unknown]
  - Disease progression [Unknown]
